FAERS Safety Report 21558796 (Version 3)
Quarter: 2023Q4

REPORT INFORMATION
  Report Type: Report from Study
  Country: US (occurrence: None)
  Receive Date: 20221107
  Receipt Date: 20231121
  Transmission Date: 20240110
  Serious: Yes (Hospitalization)
  Sender: FDA-Public Use
  Company Number: US-ROCHE-3213524

PATIENT
  Age: 78 Year
  Sex: Male
  Weight: 72.4 kg

DRUGS (12)
  1. RITUXIMAB [Suspect]
     Active Substance: RITUXIMAB
     Indication: Chronic lymphocytic leukaemia
     Route: 041
     Dates: start: 20220516, end: 20221003
  2. VENETOCLAX [Suspect]
     Active Substance: VENETOCLAX
     Indication: Chronic lymphocytic leukaemia
     Route: 048
     Dates: start: 20220807, end: 20220814
  3. VENETOCLAX [Suspect]
     Active Substance: VENETOCLAX
     Route: 048
     Dates: start: 20220906, end: 20221031
  4. VENETOCLAX [Suspect]
     Active Substance: VENETOCLAX
     Route: 048
     Dates: start: 20220815, end: 20220821
  5. VENETOCLAX [Suspect]
     Active Substance: VENETOCLAX
     Route: 048
     Dates: start: 20220822, end: 20220828
  6. VENETOCLAX [Suspect]
     Active Substance: VENETOCLAX
     Route: 048
     Dates: start: 20220829, end: 20220905
  7. VENETOCLAX [Suspect]
     Active Substance: VENETOCLAX
     Dosage: THE LAST DOSE OF 400 MG OF VENETOCLAX PRIOR TO SAE WERE ON 04/DEC/2022.
     Route: 048
     Dates: start: 20221116, end: 20221204
  8. PIRTOBRUTINIB [Suspect]
     Active Substance: PIRTOBRUTINIB
     Indication: Chronic lymphocytic leukaemia
     Dosage: THE LAST DOSE OF 200 MG OF PIRTOBRUTINIB PRIOR TO SAE WERE ON 02/DEC/2022
     Route: 048
     Dates: start: 20220516, end: 20221031
  9. PIRTOBRUTINIB [Suspect]
     Active Substance: PIRTOBRUTINIB
     Route: 048
     Dates: start: 20221116, end: 20221202
  10. ASPIRIN [Concomitant]
     Active Substance: ASPIRIN
  11. ELIQUIS [Concomitant]
     Active Substance: APIXABAN
  12. ALLOPURINOL [Concomitant]
     Active Substance: ALLOPURINOL

REACTIONS (1)
  - Cerebrovascular accident [Recovered/Resolved]

NARRATIVE: CASE EVENT DATE: 20221101
